FAERS Safety Report 17217720 (Version 1)
Quarter: 2019Q4

REPORT INFORMATION
  Report Type: Spontaneous
  Country: US (occurrence: US)
  Receive Date: 20191231
  Receipt Date: 20191231
  Transmission Date: 20200122
  Serious: No
  Sender: FDA-Public Use
  Company Number: US-EMCURE PHARMACEUTICALS LTD-2019-EPL-1235

PATIENT

DRUGS (2)
  1. NARATRIPTAN HYDROCHLORIDE. [Suspect]
     Active Substance: NARATRIPTAN HYDROCHLORIDE
     Indication: MIGRAINE
     Dosage: 2.5 MILLIGRAM, ONCE OR SOMETIMES TWICE IN A WEEK
     Route: 048
     Dates: start: 201908
  2. TOPAMAX [Concomitant]
     Active Substance: TOPIRAMATE
     Indication: MIGRAINE
     Dosage: ON DAILY BASIS SINCE YEARS

REACTIONS (4)
  - Nausea [Unknown]
  - Vomiting [Unknown]
  - Hyperchlorhydria [Unknown]
  - Abdominal pain upper [Unknown]

NARRATIVE: CASE EVENT DATE: 201908
